FAERS Safety Report 6697495-X (Version None)
Quarter: 2010Q2

REPORT INFORMATION
  Report Type: 
  Country: None (occurrence: None)
  Receive Date: 20100422
  Receipt Date: 20100413
  Transmission Date: 20101027
  Serious: Yes (Death, Hospitalization)
  Sender: FDA-Public Use
  Company Number: 2010AL002167

PATIENT
  Age: 50 Year
  Sex: Female

DRUGS (6)
  1. AMLODIPINE BESYLATE [Suspect]
     Indication: HYPERTENSION
     Dosage: 10 MG; QD; NGT
  2. FOSPHENYTOIN [Concomitant]
  3. PROPOFOL [Concomitant]
  4. NICARDIPINE HYDROCHLORIDE [Concomitant]
  5. FENTANYL [Concomitant]
  6. FAMOTIDINE [Concomitant]

REACTIONS (7)
  - ANGIOEDEMA [None]
  - CARDIAC ARREST [None]
  - CONVULSION [None]
  - NEUROLOGICAL DECOMPENSATION [None]
  - PYREXIA [None]
  - RESPIRATORY DISTRESS [None]
  - TACHYCARDIA [None]
